FAERS Safety Report 12977376 (Version 1)
Quarter: 2016Q4

REPORT INFORMATION
  Report Type: Other
  Country: IR (occurrence: US)
  Receive Date: 20161128
  Receipt Date: 20161128
  Transmission Date: 20170207
  Serious: Yes (Hospitalization)
  Sender: FDA-Public Use
  Company Number: US-HETERO LABS LTD-1060083

PATIENT
  Age: 28 Year
  Sex: Female

DRUGS (1)
  1. ARIPIPRAZOLE. [Suspect]
     Active Substance: ARIPIPRAZOLE
     Indication: OBSESSIVE-COMPULSIVE DISORDER
     Route: 065

REACTIONS (1)
  - Hypersensitivity vasculitis [Recovered/Resolved]
